FAERS Safety Report 5094820-0 (Version None)
Quarter: 2006Q3

REPORT INFORMATION
  Report Type: 
  Country: None (occurrence: None)
  Receive Date: 20060830
  Receipt Date: 20060830
  Transmission Date: 20061208
  Serious: Yes (Hospitalization)
  Sender: FDA-Public Use
  Company Number: None

PATIENT
  Sex: Female
  Weight: 89.2 kg

DRUGS (3)
  1. CYTARABINE [Suspect]
     Dosage: 1330 MG
  2. DAUNORUBICIN HCL [Suspect]
     Dosage: 255 MG
  3. LEUKINE [Suspect]
     Dosage: 1500 MG

REACTIONS (10)
  - ABSCESS [None]
  - BONE MARROW FAILURE [None]
  - BRAIN COMPRESSION [None]
  - BRAIN HERNIATION [None]
  - CEREBRAL DISORDER [None]
  - HAEMORRHAGE [None]
  - MENTAL STATUS CHANGES [None]
  - PYREXIA [None]
  - REFUSAL OF TREATMENT BY RELATIVE [None]
  - SEPTIC EMBOLUS [None]
